FAERS Safety Report 6399006-5 (Version None)
Quarter: 2009Q4

REPORT INFORMATION
  Report Type: 
  Country: None (occurrence: None)
  Receive Date: 20091008
  Receipt Date: 20091008
  Transmission Date: 20100525
  Serious: No
  Sender: FDA-Public Use
  Company Number: None

PATIENT
  Sex: Male
  Weight: 21.2 kg

DRUGS (4)
  1. METHOTREXATE [Suspect]
     Dosage: 480 MG
     Dates: end: 20090921
  2. ONCASPAR [Suspect]
     Dosage: 4381 IU
     Dates: end: 20090909
  3. VINCRISTINE SULFATE [Suspect]
     Dosage: 5.2 MG
     Dates: end: 20090921
  4. CYTARABINE [Suspect]
     Dosage: 140 MG
     Dates: end: 20090921

REACTIONS (1)
  - BLOOD BILIRUBIN INCREASED [None]
